FAERS Safety Report 25833461 (Version 1)
Quarter: 2025Q3

REPORT INFORMATION
  Report Type: Spontaneous
  Country: GB (occurrence: GB)
  Receive Date: 20250922
  Receipt Date: 20250922
  Transmission Date: 20251021
  Serious: Yes (Other)
  Sender: ELI LILLY AND COMPANY
  Company Number: None

PATIENT
  Age: 29 Year
  Sex: Female

DRUGS (2)
  1. MOUNJARO [Interacting]
     Active Substance: TIRZEPATIDE
     Indication: Weight control
     Route: 065
     Dates: start: 20250701, end: 20250808
  2. NORETHINDRONE [Interacting]
     Active Substance: NORETHINDRONE
     Indication: Endometriosis
     Dosage: 5 MG, DAILY
     Route: 065
     Dates: start: 20240701

REACTIONS (4)
  - Vaginal haemorrhage [Recovering/Resolving]
  - Brain fog [Recovering/Resolving]
  - Endometriosis [Recovered/Resolved]
  - Drug interaction [Recovering/Resolving]

NARRATIVE: CASE EVENT DATE: 20250729
